FAERS Safety Report 21164141 (Version 1)
Quarter: 2022Q3

REPORT INFORMATION
  Report Type: Spontaneous
  Country: ES (occurrence: ES)
  Receive Date: 20220803
  Receipt Date: 20220803
  Transmission Date: 20221027
  Serious: Yes (Hospitalization)
  Sender: FDA-Public Use
  Company Number: None

PATIENT
  Age: 58 Year
  Sex: Female

DRUGS (10)
  1. IBUPROFEN [Suspect]
     Active Substance: IBUPROFEN
     Indication: Back pain
     Dosage: 1800 MILLIGRAM DAILY; 600 MG EVERY 8 HOURS, (1769A),  DURATION 7 DAYS
     Dates: start: 20210427, end: 20210504
  2. FOSAVANCE [Concomitant]
     Active Substance: ALENDRONATE SODIUM\CHOLECALCIFEROL
     Indication: Arthralgia
     Dosage: 70.0 MG EVERY 7 DAYS, 70 MG/2,800 IU, 40 TABLETS
     Dates: start: 20180925
  3. CLOBEX [Concomitant]
     Active Substance: CLOBETASOL PROPIONATE
     Indication: Hypersensitivity
     Dosage: 7.5 ML DAILY; 7.5 ML C/24 H,FORM STRENGTH 500 MICROGRAMS/G SHAMPOO, 1 BOTTLE OF 125 ML
     Dates: start: 20170912
  4. CLOTRIMAZOLE CANESMED [Concomitant]
     Indication: Urticaria
     Dosage: 1.0 APPLIC C/12 H  FORM STRENGTH 10 MG/G CREAM EFG, 1 TUBE OF 30 G
     Dates: start: 20171130
  5. VIDESIL [Concomitant]
     Indication: Osteoporosis
     Dosage: 50000 IU EVERY 7 DAYS, FORM STRENGTH 50,000 IU, 1 AMPOULE
     Dates: start: 20190202
  6. OMEPRAZOL AUROVITAS [Concomitant]
     Indication: Gastritis
     Dosage: 20.0 MG A-DE, AUROVITAS SPAIN, FORM STRENGTH 20 MG, EFG GASTRO-RESISTANT HARD CAPSULES, 56 CAPSULES
     Dates: start: 20101005
  7. LEXXEMA [Concomitant]
     Indication: Dermatitis atopic
     Dosage: 1.0 APPLY W/24 H, FORM STRENGTH- 1 MG/G OINTMENT, 1 TUBE OF 60 G
     Dates: start: 20170929
  8. URSOBILANE [Concomitant]
     Indication: Depression
     Dosage: 300.0 MG DECOCE, FORM STRENGTH 300 MG CAPSULES, 60 CAPSULES
     Dates: start: 20110526
  9. TACROLIMUS [Concomitant]
     Active Substance: TACROLIMUS
     Indication: Liver transplant
     Dosage: 2 MILLIGRAM DAILY; 2.0 MG C/24 H, FORM STRENGTH 1 MG, 60 CAPSULES
     Dates: start: 20150523
  10. LORAZEPAM KERN PHARMA [Concomitant]
     Indication: Depression
     Dosage: 15 MILLIGRAM DAILY; 5 MG EVERY 8 HOURS, 5 MG TABLETS EFG, 20 TABLETS
     Dates: start: 20191029

REACTIONS (1)
  - Pancreatitis acute [Recovered/Resolved]

NARRATIVE: CASE EVENT DATE: 20210504
